FAERS Safety Report 18235453 (Version 1)
Quarter: 2020Q3

REPORT INFORMATION
  Report Type: Spontaneous
  Country: US (occurrence: US)
  Receive Date: 20200905
  Receipt Date: 20200905
  Transmission Date: 20201103
  Serious: Yes (Hospitalization)
  Sender: FDA-Public Use
  Company Number: US-APNAR-000073

PATIENT
  Sex: Female

DRUGS (15)
  1. CHANTIX [Suspect]
     Active Substance: VARENICLINE TARTRATE
  2. PANTOPRAZOLE [Suspect]
     Active Substance: PANTOPRAZOLE
  3. FENTANYL. [Suspect]
     Active Substance: FENTANYL
  4. BETAMETHASONE ACETATE/BETAMETHASONE SODIUM PHOSPHATE [Suspect]
     Active Substance: BETAMETHASONE ACETATE\BETAMETHASONE SODIUM PHOSPHATE
  5. NAPROXEN. [Suspect]
     Active Substance: NAPROXEN
  6. METRONIDAZOLE. [Suspect]
     Active Substance: METRONIDAZOLE
  7. NABUMETONE. [Suspect]
     Active Substance: NABUMETONE
  8. CYCLOBENZAPRINE. [Suspect]
     Active Substance: CYCLOBENZAPRINE
  9. FLUOXETINE [Suspect]
     Active Substance: FLUOXETINE HYDROCHLORIDE
  10. IBUPROFEN. [Suspect]
     Active Substance: IBUPROFEN
  11. SYMBICORT [Suspect]
     Active Substance: BUDESONIDE\FORMOTEROL FUMARATE DIHYDRATE
  12. FAMOTIDINE. [Suspect]
     Active Substance: FAMOTIDINE
  13. LATANOPROST. [Suspect]
     Active Substance: LATANOPROST
  14. HYDROCODONE BITARTRATE AND ACETAMINOPHEN [Suspect]
     Active Substance: ACETAMINOPHEN\HYDROCODONE BITARTRATE
  15. LEVOTHYROXINE. [Suspect]
     Active Substance: LEVOTHYROXINE

REACTIONS (3)
  - Depression [Unknown]
  - Suicide attempt [Unknown]
  - Eating disorder [Unknown]
